FAERS Safety Report 13252971 (Version 2)
Quarter: 2017Q1

REPORT INFORMATION
  Report Type: Spontaneous
  Country: US (occurrence: US)
  Receive Date: 20170220
  Receipt Date: 20170324
  Transmission Date: 20170428
  Serious: Yes (Other)
  Sender: FDA-Public Use
  Company Number: US-ELI_LILLY_AND_COMPANY-US201608005975

PATIENT
  Sex: Female

DRUGS (9)
  1. CYMBALTA [Suspect]
     Active Substance: DULOXETINE HYDROCHLORIDE
     Indication: ANXIETY
     Dosage: UNK, UNKNOWN
     Route: 065
  2. ATIVAN [Concomitant]
     Active Substance: LORAZEPAM
     Indication: PRODUCT USED FOR UNKNOWN INDICATION
     Dosage: UNK, UNKNOWN
     Route: 065
  3. CYMBALTA [Suspect]
     Active Substance: DULOXETINE HYDROCHLORIDE
     Indication: DEPRESSION
     Dosage: 60 MG, QD
     Route: 065
  4. TRAZODONE [Concomitant]
     Active Substance: TRAZODONE HYDROCHLORIDE
     Dosage: 100 MG, UNKNOWN
     Route: 065
  5. ZOLOFT [Concomitant]
     Active Substance: SERTRALINE HYDROCHLORIDE
     Dosage: UNK, UNKNOWN
     Route: 065
  6. BUPROPION. [Concomitant]
     Active Substance: BUPROPION
     Indication: DEPRESSION
     Dosage: 150 MG, QD
     Route: 065
  7. SERTRALINE [Concomitant]
     Active Substance: SERTRALINE HYDROCHLORIDE
     Dosage: 100 MG, UNKNOWN
     Route: 065
  8. ADAVIN [Concomitant]
     Dosage: UNK, UNKNOWN
     Route: 065
  9. ZYPREXA [Concomitant]
     Active Substance: OLANZAPINE
     Dosage: 5 MG, UNKNOWN
     Route: 065

REACTIONS (23)
  - Suicidal ideation [Unknown]
  - Confusional state [Unknown]
  - Drug withdrawal syndrome [Unknown]
  - Tinnitus [Unknown]
  - Vomiting [Unknown]
  - Fatigue [Unknown]
  - Agitation [Unknown]
  - Depression [Unknown]
  - Vertigo [Unknown]
  - Tremor [Unknown]
  - Affect lability [Unknown]
  - Insomnia [Unknown]
  - Flank pain [Unknown]
  - Irritability [Unknown]
  - Hyperhidrosis [Unknown]
  - Diarrhoea [Unknown]
  - Dysphoria [Unknown]
  - Dizziness [Unknown]
  - Paraesthesia [Unknown]
  - Lethargy [Unknown]
  - Headache [Unknown]
  - Anxiety [Unknown]
  - Nausea [Unknown]
